FAERS Safety Report 7675750-4 (Version None)
Quarter: 2011Q3

REPORT INFORMATION
  Report Type: 
  Country: None (occurrence: None)
  Receive Date: 20110810
  Receipt Date: 20110512
  Transmission Date: 20111222
  Serious: No
  Sender: FDA-Public Use
  Company Number: US-TYCO HEALTHCARE/MALLINCKRODT-T201100971

PATIENT
  Sex: Male
  Weight: 83.9 kg

DRUGS (1)
  1. PENNSAID [Suspect]
     Indication: ARTHRALGIA
     Dosage: 10 DROPS
     Route: 061
     Dates: start: 20110301, end: 20110301

REACTIONS (4)
  - NEUROPATHY PERIPHERAL [None]
  - APPLICATION SITE EXFOLIATION [None]
  - BURNING SENSATION [None]
  - APPLICATION SITE ERYTHEMA [None]
